FAERS Safety Report 9358723 (Version 4)
Quarter: 2013Q3

REPORT INFORMATION
  Report Type: Spontaneous
  Country: DE (occurrence: DE)
  Receive Date: 20130620
  Receipt Date: 20130801
  Transmission Date: 20140515
  Serious: Yes (Other)
  Sender: FDA-Public Use
  Company Number: DE-CELGENEUS-062-50794-13061777

PATIENT
  Age: 81 Year
  Sex: Male
  Weight: 69.9 kg

DRUGS (9)
  1. VIDAZA [Suspect]
     Indication: ACUTE MYELOID LEUKAEMIA
     Dosage: 135 MILLIGRAM
     Route: 041
     Dates: start: 20120703, end: 20120711
  2. PANTOZOL [Concomitant]
     Indication: GASTRITIS
     Dosage: 40
     Route: 065
  3. ONDANSETRON [Concomitant]
     Indication: ANTIEMETIC SUPPORTIVE CARE
     Dosage: 8 MILLIGRAM
     Route: 065
     Dates: start: 20130603, end: 20130611
  4. NITREPRESS [Concomitant]
     Indication: PRODUCT USED FOR UNKNOWN INDICATION
     Dosage: 20
     Route: 065
  5. DELIX [Concomitant]
     Indication: HYPERTENSION
     Dosage: 10
     Route: 065
  6. BELOC ZOK [Concomitant]
     Indication: HYPERTENSION
     Route: 065
  7. LASIX [Concomitant]
     Indication: HYPERTENSION
     Dosage: 40 MILLIGRAM
     Route: 065
  8. MG VERLA [Concomitant]
     Indication: PRODUCT USED FOR UNKNOWN INDICATION
     Route: 065
  9. ACTRAPHANE [Concomitant]
     Indication: DIABETES MELLITUS
     Dosage: 30/70
     Route: 065

REACTIONS (3)
  - Extravasation [Recovered/Resolved]
  - Erythema [Recovered/Resolved]
  - Swelling [Recovered/Resolved]
